FAERS Safety Report 5753961-2 (Version None)
Quarter: 2008Q2

REPORT INFORMATION
  Report Type: 
  Country: None (occurrence: None)
  Receive Date: 20080527
  Receipt Date: 20080527
  Transmission Date: 20081010
  Serious: Yes (Other)
  Sender: FDA-Public Use
  Company Number: None

PATIENT
  Age: 51 Year
  Sex: Female
  Weight: 104.3273 kg

DRUGS (4)
  1. CHANTIX [Suspect]
     Indication: SMOKING CESSATION THERAPY
     Dosage: GRADUATED TO 1 MG DAILY PO
     Route: 048
     Dates: start: 20071101, end: 20071121
  2. CHANTIX [Suspect]
     Indication: SMOKING CESSATION THERAPY
     Dosage: GRADUATED TO 1 MG DAILY PO
     Route: 048
     Dates: start: 20080115, end: 20080130
  3. ESTROGEN [Concomitant]
  4. REBIF [Concomitant]

REACTIONS (14)
  - AGITATION [None]
  - ANXIETY [None]
  - BALANCE DISORDER [None]
  - COGNITIVE DISORDER [None]
  - CONFUSIONAL STATE [None]
  - COORDINATION ABNORMAL [None]
  - DEPRESSION [None]
  - EMOTIONAL DISORDER [None]
  - FEELING ABNORMAL [None]
  - MOTOR DYSFUNCTION [None]
  - SLEEP DISORDER [None]
  - SUICIDAL IDEATION [None]
  - TREATMENT NONCOMPLIANCE [None]
  - TREMOR [None]
